FAERS Safety Report 20893600 (Version 3)
Quarter: 2022Q3

REPORT INFORMATION
  Report Type: Report from Study
  Country: AU (occurrence: AU)
  Receive Date: 20220531
  Receipt Date: 20220829
  Transmission Date: 20221027
  Serious: Yes (Hospitalization, Other)
  Sender: FDA-Public Use
  Company Number: AU-CELGENE-AUS-20210905311

PATIENT
  Age: 81 Year
  Sex: Female

DRUGS (27)
  1. POMALIDOMIDE [Suspect]
     Active Substance: POMALIDOMIDE
     Indication: Plasma cell myeloma recurrent
     Dosage: DAY 1-14 OF 21 DAYS CYCLE
     Route: 048
     Dates: start: 20210906, end: 20210914
  2. POMALIDOMIDE [Suspect]
     Active Substance: POMALIDOMIDE
  3. DEXAMETHASONE [Suspect]
     Active Substance: DEXAMETHASONE
     Indication: Plasma cell myeloma recurrent
     Dosage: FREQUENCY TEXT: DAY OF AND DAY AFTER BORTEZOMIB
     Route: 048
     Dates: start: 20210906, end: 20210914
  4. BORTEZOMIB [Suspect]
     Active Substance: BORTEZOMIB
     Indication: Plasma cell myeloma recurrent
     Dosage: FREQUENCY TEXT: 1 4 8 11 OF 21 DAY CYCLE
     Route: 058
     Dates: start: 20210906, end: 20210913
  5. BORTEZOMIB [Suspect]
     Active Substance: BORTEZOMIB
  6. CALCIUM [Concomitant]
     Active Substance: CALCIUM
     Dosage: INTERVAL: 1 DAY
     Route: 048
     Dates: start: 2015
  7. CALCIUM [Concomitant]
     Active Substance: CALCIUM
     Indication: Product used for unknown indication
  8. METHYLPREDNISOLONE ACEPONATE [Concomitant]
     Active Substance: METHYLPREDNISOLONE ACEPONATE
     Dosage: FREQUENCY TEXT: NOT PROVIDED
     Route: 061
     Dates: start: 2015
  9. METHYLPREDNISOLONE ACEPONATE [Concomitant]
     Active Substance: METHYLPREDNISOLONE ACEPONATE
     Indication: Skin reaction
  10. VALTREX [Concomitant]
     Active Substance: VALACYCLOVIR HYDROCHLORIDE
     Indication: Product used for unknown indication
     Dates: start: 20210916
  11. TEMISARTAN [Concomitant]
     Indication: Hypertension
     Dosage: INTERVAL: 1 DAY
     Route: 048
     Dates: start: 2004
  12. TEMISARTAN [Concomitant]
  13. CLOPIDOGREL [Concomitant]
     Active Substance: CLOPIDOGREL BISULFATE
     Indication: Platelet disorder
     Dosage: INTERVAL: 1 DAY
     Route: 048
     Dates: start: 2005
  14. CLOPIDOGREL [Concomitant]
     Active Substance: CLOPIDOGREL BISULFATE
  15. PANTOPRAZOLE SODIUM [Concomitant]
     Active Substance: PANTOPRAZOLE SODIUM
     Indication: Thermal burn
     Dosage: INTERVAL: 1 DAY
     Route: 048
     Dates: start: 2000
  16. PANTOPRAZOLE SODIUM [Concomitant]
     Active Substance: PANTOPRAZOLE SODIUM
  17. HEXAMINE HIPPURATE [Concomitant]
     Indication: Urinary tract infection
     Dosage: INTERVAL: 1 DAY
     Route: 048
     Dates: start: 2019
  18. HEXAMINE HIPPURATE [Concomitant]
  19. ESTRADIOL [Concomitant]
     Active Substance: ESTRADIOL
     Indication: Vulvovaginal dryness
     Dosage: INTERVAL 1 DAY
     Route: 067
     Dates: start: 2015
  20. PSYLLIUM [Concomitant]
     Active Substance: PLANTAGO SEED
     Indication: Product used for unknown indication
     Dosage: INTERVAL: 1 DAY
     Route: 048
     Dates: start: 2016, end: 20210901
  21. BENZYDAMINE HYDROCHLORIDE [Concomitant]
     Active Substance: BENZYDAMINE HYDROCHLORIDE
     Indication: Product used for unknown indication
     Dosage: FREQUENCY TEXT: NOT PROVIDED
     Route: 065
     Dates: start: 20210827, end: 20210901
  22. CETYLPYRIDINIUM CHLORIDE [Concomitant]
     Active Substance: CETYLPYRIDINIUM CHLORIDE
     Indication: Product used for unknown indication
     Dosage: FREQUENCY TEXT: NOT PROVIDED
     Route: 065
     Dates: start: 20210827, end: 20210901
  23. ACETAMINOPHEN [Concomitant]
     Active Substance: ACETAMINOPHEN
     Indication: Product used for unknown indication
     Dosage: FREQUENCY TEXT: NOT PROVIDED
     Route: 048
     Dates: start: 20210827, end: 20210903
  24. ACETAMINOPHEN [Concomitant]
     Active Substance: ACETAMINOPHEN
     Route: 048
     Dates: start: 20210914, end: 20210921
  25. ATORVASTATIN [Concomitant]
     Active Substance: ATORVASTATIN
     Indication: Hyperlipidaemia
     Dosage: INTERVAL: 1 DAY
     Route: 048
     Dates: start: 2014
  26. DIFFLAM PLUS [Concomitant]
     Indication: Product used for unknown indication
     Dosage: FREQUENCY TEXT: NOT PROVIDED
     Route: 065
     Dates: start: 20210827, end: 20210901
  27. VITAMIN D [Concomitant]
     Active Substance: VITAMIN D NOS
     Indication: Product used for unknown indication
     Route: 048
     Dates: start: 2015

REACTIONS (1)
  - Autonomic neuropathy [Recovered/Resolved]

NARRATIVE: CASE EVENT DATE: 20210914
